FAERS Safety Report 9451236 (Version 1)
Quarter: 2013Q3

REPORT INFORMATION
  Report Type: Spontaneous
  Country: US (occurrence: US)
  Receive Date: 20130809
  Receipt Date: 20130809
  Transmission Date: 20140515
  Serious: Yes (Other)
  Sender: FDA-Public Use
  Company Number: US-TEVA-424377USA

PATIENT
  Sex: Female

DRUGS (1)
  1. ESTRACE [Suspect]
     Indication: VULVOVAGINAL DRYNESS

REACTIONS (1)
  - Vaginal disorder [Unknown]
